FAERS Safety Report 12161633 (Version 1)
Quarter: 2016Q1

REPORT INFORMATION
  Report Type: Spontaneous
  Country: DE (occurrence: DE)
  Receive Date: 20160309
  Receipt Date: 20160309
  Transmission Date: 20160526
  Serious: Yes (Other)
  Sender: FDA-Public Use
  Company Number: DE-AMGEN-DEUSP2016027855

PATIENT
  Age: 34 Year
  Sex: Male
  Weight: 75 kg

DRUGS (1)
  1. ENBREL [Suspect]
     Active Substance: ETANERCEPT
     Indication: PSORIATIC ARTHROPATHY
     Dosage: 50 MG, WEEKLY
     Route: 058
     Dates: start: 20140106, end: 20160126

REACTIONS (8)
  - Hypoacusis [Unknown]
  - Angina pectoris [Recovered/Resolved]
  - Ear pain [Unknown]
  - Ear infection [Recovered/Resolved]
  - C-reactive protein increased [Unknown]
  - Nasopharyngitis [Recovered/Resolved]
  - White blood cell count increased [Unknown]
  - Tympanic membrane disorder [Unknown]

NARRATIVE: CASE EVENT DATE: 20160125
